FAERS Safety Report 9752745 (Version 2)
Quarter: 2013Q4

REPORT INFORMATION
  Report Type: Spontaneous
  Country: JP (occurrence: JP)
  Receive Date: 20131213
  Receipt Date: 20131213
  Transmission Date: 20140711
  Serious: Yes (Hospitalization, Other)
  Sender: FDA-Public Use
  Company Number: JP-ABBVIE-13P-087-1172485-00

PATIENT
  Age: 70 Year
  Sex: Male
  Weight: 64 kg

DRUGS (7)
  1. SEVOFRANE [Suspect]
     Indication: MAINTENANCE OF ANAESTHESIA
     Dosage: 1.0-2.0%
     Dates: start: 20130312, end: 20130312
  2. PROPOFOL [Suspect]
     Indication: INDUCTION OF ANAESTHESIA
     Route: 042
     Dates: start: 20130312, end: 20130312
  3. ESLAX [Suspect]
     Indication: HYPOTONIA
     Route: 042
     Dates: start: 20130312, end: 20130312
  4. FENTANYL [Suspect]
     Indication: ANALGESIC THERAPY
     Dosage: 9.0 TO 18.0 ML
     Route: 042
     Dates: start: 20130312, end: 20130312
  5. ULTIVA [Suspect]
     Indication: ANALGESIC THERAPY
     Dosage: DRIP 0.25 TO 0.35 MICROG/KG/HR
     Dates: start: 20130312, end: 20130312
  6. ONOACT [Concomitant]
     Indication: ARRHYTHMIA PROPHYLAXIS
     Dosage: 30 TO 60 MG
     Route: 042
     Dates: start: 20130312, end: 20130312
  7. ANAPEINE [Concomitant]
     Indication: ANALGESIC THERAPY
     Route: 058
     Dates: start: 20130312, end: 20130312

REACTIONS (2)
  - Delayed recovery from anaesthesia [Recovered/Resolved]
  - Hyperthermia malignant [Recovered/Resolved]
